FAERS Safety Report 14759726 (Version 2)
Quarter: 2018Q2

REPORT INFORMATION
  Report Type: Report from Study
  Country: JP (occurrence: JP)
  Receive Date: 20180413
  Receipt Date: 20180503
  Transmission Date: 20180711
  Serious: Yes (Other)
  Sender: FDA-Public Use
  Company Number: JP-TEVA-2018-JP-882014

PATIENT
  Age: 68 Year
  Sex: Female

DRUGS (6)
  1. MITOTANE [Suspect]
     Active Substance: MITOTANE
     Indication: ADRENAL GLAND CANCER METASTATIC
     Dosage: 1.5 GRAM DAILY; 1.5G/DAY AND INCREASED
     Route: 065
  2. MITOTANE [Suspect]
     Active Substance: MITOTANE
     Indication: ADRENAL GLAND CANCER METASTATIC
     Dosage: 7.5G/DAY
     Route: 048
  3. ETOPOSIDE. [Suspect]
     Active Substance: ETOPOSIDE
     Indication: ADRENAL GLAND CANCER METASTATIC
     Dosage: 100 MG/M2 ON DAYS 5-7 EVERY FOUR WEEKS
     Route: 065
  4. CISPLATIN. [Suspect]
     Active Substance: CISPLATIN
     Indication: ADRENAL GLAND CANCER METASTATIC
     Dosage: 40 MG/M2 ON DAYS 1 AND 9 EVERY FOUR WEEKS
     Route: 065
  5. DOXORUBICIN [Suspect]
     Active Substance: DOXORUBICIN
     Indication: ADRENAL GLAND CANCER METASTATIC
     Dosage: 20 MG/M2 ON DAYS 1 AND 8 EVERY FOUR WEEKS
     Route: 065
  6. MITOTANE [Suspect]
     Active Substance: MITOTANE
     Indication: ADRENAL GLAND CANCER METASTATIC
     Dosage: INCREASED TO 7.5G/DAY
     Route: 065

REACTIONS (4)
  - Neutropenia [Unknown]
  - Adrenal insufficiency [Unknown]
  - Febrile neutropenia [Unknown]
  - Hyponatraemia [Unknown]
